FAERS Safety Report 14098615 (Version 1)
Quarter: 2017Q4

REPORT INFORMATION
  Report Type: Spontaneous
  Country: US (occurrence: US)
  Receive Date: 20171017
  Receipt Date: 20171017
  Transmission Date: 20180321
  Serious: No
  Sender: FDA-Public Use
  Company Number: PHEH2017US033479

PATIENT
  Sex: Female
  Weight: 87 kg

DRUGS (1)
  1. AFINITOR [Suspect]
     Active Substance: EVEROLIMUS
     Indication: BREAST CANCER
     Dosage: 10 MG, QD
     Route: 048
     Dates: start: 20170609, end: 20170927

REACTIONS (3)
  - Rash [Recovering/Resolving]
  - Headache [Recovering/Resolving]
  - Dry skin [Recovering/Resolving]
